FAERS Safety Report 14895022 (Version 2)
Quarter: 2018Q4

REPORT INFORMATION
  Report Type: Spontaneous
  Country: AU (occurrence: AU)
  Receive Date: 20180515
  Receipt Date: 20181003
  Transmission Date: 20190204
  Serious: Yes (Other)
  Sender: FDA-Public Use
  Company Number: AU-TEVA-2018-AU-892889

PATIENT
  Age: 77 Year
  Sex: Female

DRUGS (2)
  1. IMATINIB. [Suspect]
     Active Substance: IMATINIB MESYLATE
     Route: 065
  2. HYDROXYUREA. [Concomitant]
     Active Substance: HYDROXYUREA

REACTIONS (4)
  - White blood cell count decreased [Unknown]
  - White blood cell count abnormal [Unknown]
  - Hepatic function abnormal [Unknown]
  - Drug intolerance [Unknown]
